FAERS Safety Report 17608791 (Version 2)
Quarter: 2020Q2

REPORT INFORMATION
  Report Type: Report from Study
  Country: CA (occurrence: CA)
  Receive Date: 20200401
  Receipt Date: 20200406
  Transmission Date: 20200713
  Serious: Yes (Hospitalization, Other)
  Sender: FDA-Public Use
  Company Number: CA-GLAXOSMITHKLINE-CA2020AMR054031

PATIENT
  Sex: Female

DRUGS (4)
  1. SYMBICORT [Suspect]
     Active Substance: BUDESONIDE\FORMOTEROL FUMARATE DIHYDRATE
     Indication: PRODUCT USED FOR UNKNOWN INDICATION
     Dosage: 2 PUFF(S), TID
  2. PULMICORT RESPULES [Suspect]
     Active Substance: BUDESONIDE
     Indication: PRODUCT USED FOR UNKNOWN INDICATION
     Dosage: UNK UNK, BID
  3. SALBUTAMOL SULPHATE [Suspect]
     Active Substance: ALBUTEROL SULFATE
     Indication: PRODUCT USED FOR UNKNOWN INDICATION
     Dosage: UNK UNK, PRN
  4. BRICANYL [Suspect]
     Active Substance: TERBUTALINE SULFATE
     Indication: PRODUCT USED FOR UNKNOWN INDICATION
     Dosage: UNK

REACTIONS (17)
  - Therapeutic product effect incomplete [Unknown]
  - Reversible airways obstruction [Unknown]
  - Hyposmia [Unknown]
  - Condition aggravated [Unknown]
  - Cough [Unknown]
  - Allergy to plants [Unknown]
  - Drug intolerance [Unknown]
  - Nasal polyps [Unknown]
  - Polyp [Unknown]
  - Blood count abnormal [Unknown]
  - Loss of personal independence in daily activities [Unknown]
  - Asthma [Unknown]
  - Dust allergy [Unknown]
  - Dyspnoea [Unknown]
  - Pneumothorax [Unknown]
  - Sleep disorder due to a general medical condition [Unknown]
  - Wheezing [Unknown]
